FAERS Safety Report 8102638-7 (Version None)
Quarter: 2012Q1

REPORT INFORMATION
  Report Type: 
  Country: None (occurrence: None)
  Receive Date: 20120201
  Receipt Date: 20120123
  Transmission Date: 20120608
  Serious: Yes (Death, Other)
  Sender: FDA-Public Use
  Company Number: JP-CELGENEUS-087-50794-11041987

PATIENT
  Sex: Male
  Weight: 60 kg

DRUGS (13)
  1. VIDAZA [Suspect]
     Indication: MYELODYSPLASTIC SYNDROME
     Dosage: 75 MILLIGRAM/SQ. METER
     Route: 041
     Dates: start: 20110317, end: 20110323
  2. MAGNESIUM OXIDE [Concomitant]
     Route: 065
     Dates: end: 20110513
  3. FLUCONAZOLE [Concomitant]
     Route: 065
     Dates: start: 20110329, end: 20110405
  4. NEOPHAGEN [Concomitant]
     Route: 065
     Dates: end: 20110530
  5. MUCOSOLVAN [Concomitant]
     Route: 065
     Dates: start: 20110408, end: 20110416
  6. VFEND [Concomitant]
     Route: 065
     Dates: start: 20110406, end: 20110416
  7. DEXAMETHASONE SODIUM PHOSPHATE [Concomitant]
     Route: 065
     Dates: start: 20110317, end: 20110323
  8. CEFTAZIDIME [Concomitant]
     Route: 065
     Dates: start: 20110324, end: 20110328
  9. IMIPENEM AND CILASTATIN SODIUM [Concomitant]
     Route: 065
     Dates: start: 20110328, end: 20110602
  10. SHITEI [Concomitant]
     Route: 065
     Dates: start: 20110320, end: 20110408
  11. MUCODYNE [Concomitant]
     Route: 065
     Dates: start: 20110408, end: 20110416
  12. GLUFAST [Concomitant]
     Route: 065
     Dates: end: 20110520
  13. BACLOFEN [Concomitant]
     Route: 065
     Dates: start: 20110324, end: 20110405

REACTIONS (7)
  - MYELODYSPLASTIC SYNDROME [None]
  - PANCYTOPENIA [None]
  - ANAEMIA [None]
  - HICCUPS [None]
  - PLATELET COUNT DECREASED [None]
  - WHITE BLOOD CELL COUNT DECREASED [None]
  - PNEUMONIA [None]
